FAERS Safety Report 22124774 (Version 2)
Quarter: 2023Q2

REPORT INFORMATION
  Report Type: Spontaneous
  Country: US (occurrence: US)
  Receive Date: 20230322
  Receipt Date: 20230411
  Transmission Date: 20230722
  Serious: Yes (Other)
  Sender: FDA-Public Use
  Company Number: US-BAYER-2023A036224

PATIENT
  Age: 19 Year
  Sex: Male

DRUGS (1)
  1. KOGENATE FS [Suspect]
     Active Substance: ANTIHEMOPHILIC FACTOR, HUMAN RECOMBINANT
     Dosage: 3440 UNITS (+/-10%)

REACTIONS (2)
  - Rectal haemorrhage [None]
  - Haemorrhoids [None]

NARRATIVE: CASE EVENT DATE: 20230313
